FAERS Safety Report 4569669-5 (Version None)
Quarter: 2005Q1

REPORT INFORMATION
  Report Type: 
  Country: None (occurrence: None)
  Receive Date: 20050201
  Receipt Date: 20050119
  Transmission Date: 20050727
  Serious: Yes (Hospitalization)
  Sender: FDA-Public Use
  Company Number: DEU-2004-0001169

PATIENT
  Age: 73 Year
  Sex: Male
  Weight: 72 kg

DRUGS (7)
  1. PALLADONE [Suspect]
     Indication: CANCER PAIN
     Dosage: 4 MG BID ORAL
     Route: 048
     Dates: start: 20041011, end: 20041101
  2. PALLADONE [Suspect]
     Indication: CANCER PAIN
     Dosage: 1.3 ORAL
     Route: 048
     Dates: start: 20041019
  3. IBUPROFEN [Concomitant]
  4. DURAGESIC [Concomitant]
  5. DOMPERIDONE MALEATE (DOMPERIDONE MALEATE) [Concomitant]
  6. MOVICOL (MACROGOL SODIUM CHLORIDE, POTASSIUM CHLORIDE, SODIUM BICARBON [Concomitant]
  7. METAMIZOLE SODIUM [Concomitant]

REACTIONS (1)
  - METASTASES TO BONE [None]
